FAERS Safety Report 24289718 (Version 1)
Quarter: 2024Q3

REPORT INFORMATION
  Report Type: Spontaneous
  Country: DE (occurrence: DE)
  Receive Date: 20240906
  Receipt Date: 20240906
  Transmission Date: 20241017
  Serious: No
  Sender: ALKEM
  Company Number: None

PATIENT
  Age: 32 Year
  Sex: Female
  Weight: 77 kg

DRUGS (2)
  1. PREGABALIN [Suspect]
     Active Substance: PREGABALIN
     Indication: Anxiety disorder
     Dosage: 3 DOSAGE FORM, QD (EVERY 1 DAY, TABLET)
     Route: 048
  2. PREGABALIN [Suspect]
     Active Substance: PREGABALIN
     Indication: Back pain

REACTIONS (8)
  - Palpitations [Recovering/Resolving]
  - Headache [Recovering/Resolving]
  - Anxiety [Unknown]
  - Dyspnoea [Unknown]
  - Sleep disorder [Unknown]
  - Somnolence [Recovering/Resolving]
  - Dizziness [Recovering/Resolving]
  - Dry mouth [Recovering/Resolving]

NARRATIVE: CASE EVENT DATE: 20220120
